FAERS Safety Report 13749095 (Version 1)
Quarter: 2017Q3

REPORT INFORMATION
  Report Type: Spontaneous
  Country: US (occurrence: US)
  Receive Date: 20170713
  Receipt Date: 20170713
  Transmission Date: 20171127
  Serious: No
  Sender: FDA-Public Use
  Company Number: US-009507513-1706USA005778

PATIENT
  Age: 58 Year
  Sex: Female

DRUGS (7)
  1. BELSOMRA [Suspect]
     Active Substance: SUVOREXANT
     Indication: INSOMNIA
     Dosage: HIGHER DOSE THAN MAXIMAL LEVEL
     Route: 048
     Dates: start: 20170503
  2. TEGRETOL [Concomitant]
     Active Substance: CARBAMAZEPINE
     Indication: BIPOLAR DISORDER
     Dosage: TOTAL DAILY DOSE 100
     Route: 048
     Dates: start: 2010
  3. GABAPENTIN. [Concomitant]
     Active Substance: GABAPENTIN
     Dosage: TOAL DAILY DOSE 600
     Route: 048
     Dates: start: 2010
  4. CYMBALTA [Concomitant]
     Active Substance: DULOXETINE HYDROCHLORIDE
     Indication: PAIN
     Dosage: TOAL DAILY DOSE 120
     Route: 048
     Dates: start: 2010
  5. CYMBALTA [Concomitant]
     Active Substance: DULOXETINE HYDROCHLORIDE
     Indication: FIBROMYALGIA
  6. TRAMADOL HYDROCHLORIDE. [Concomitant]
     Active Substance: TRAMADOL HYDROCHLORIDE
     Indication: FIBROMYALGIA
     Dosage: TOTAL DAILY DOSE 200
     Route: 048
     Dates: start: 2010
  7. BELSOMRA [Suspect]
     Active Substance: SUVOREXANT
     Dosage: UNK
     Route: 048

REACTIONS (1)
  - Overdose [Unknown]

NARRATIVE: CASE EVENT DATE: 20170503
